FAERS Safety Report 9684267 (Version 1)
Quarter: 2013Q4

REPORT INFORMATION
  Report Type: Spontaneous
  Country: US (occurrence: US)
  Receive Date: 20131112
  Receipt Date: 20131112
  Transmission Date: 20140711
  Serious: No
  Sender: FDA-Public Use
  Company Number: US-FOUGERA-2012FO001410

PATIENT
  Age: 72 Year
  Sex: Male
  Weight: 63.56 kg

DRUGS (3)
  1. CLOBETASOL PROPIONATE [Suspect]
     Indication: PRURITUS
     Route: 061
     Dates: start: 201210
  2. CLOBETASOL PROPIONATE [Suspect]
     Indication: PSORIASIS
  3. METFORMIN [Concomitant]
     Indication: DIABETES MELLITUS
     Route: 048
     Dates: start: 2000

REACTIONS (2)
  - Therapeutic response decreased [Not Recovered/Not Resolved]
  - Incorrect drug administration duration [Not Recovered/Not Resolved]
